FAERS Safety Report 8547737-0 (Version None)
Quarter: 2012Q3

REPORT INFORMATION
  Report Type: 
  Country: None (occurrence: None)
  Receive Date: 20120727
  Receipt Date: 20120503
  Transmission Date: 20120928
  Serious: No
  Sender: FDA-Public Use
  Company Number: US-ASTRAZENECA-2012SE29041

PATIENT
  Age: 42 Year
  Sex: Male

DRUGS (2)
  1. SEROQUEL XR [Suspect]
     Indication: BIPOLAR DISORDER
     Route: 048
  2. SEROQUEL XR [Suspect]
     Indication: ANXIETY
     Route: 048

REACTIONS (4)
  - CONFUSIONAL STATE [None]
  - MALAISE [None]
  - TREMOR [None]
  - INTENTIONAL DRUG MISUSE [None]
